FAERS Safety Report 4831714-7 (Version None)
Quarter: 2005Q4

REPORT INFORMATION
  Report Type: 
  Country: None (occurrence: None)
  Receive Date: 20051118
  Receipt Date: 20051108
  Transmission Date: 20060501
  Serious: Yes (Hospitalization)
  Sender: FDA-Public Use
  Company Number: FR-AVENTIS-200513717FR

PATIENT
  Age: 70 Year
  Sex: Male
  Weight: 99 kg

DRUGS (8)
  1. DAONIL 5 MG [Suspect]
     Indication: DIABETES MELLITUS NON-INSULIN-DEPENDENT
     Route: 048
     Dates: end: 20050923
  2. ATROVENT [Suspect]
     Indication: BRONCHITIS CHRONIC
     Route: 055
     Dates: end: 20050923
  3. DOMPERIDONE [Suspect]
     Route: 048
     Dates: end: 20050923
  4. TAHOR [Suspect]
     Indication: HYPERLIPIDAEMIA
     Route: 048
     Dates: end: 20050923
  5. KENZEN [Concomitant]
     Indication: ESSENTIAL HYPERTENSION
     Route: 048
  6. MEDIATENSYL [Concomitant]
     Indication: ESSENTIAL HYPERTENSION
     Route: 048
  7. ZANIDIP [Concomitant]
  8. KALEORID [Concomitant]

REACTIONS (10)
  - ALANINE AMINOTRANSFERASE INCREASED [None]
  - ASPARTATE AMINOTRANSFERASE INCREASED [None]
  - BLOOD ALKALINE PHOSPHATASE INCREASED [None]
  - BLOOD CREATINE PHOSPHOKINASE INCREASED [None]
  - HEPATIC ENZYME INCREASED [None]
  - HEPATOCELLULAR DAMAGE [None]
  - HYPOGLYCAEMIA [None]
  - LOSS OF CONSCIOUSNESS [None]
  - MALAISE [None]
  - NORMOCHROMIC NORMOCYTIC ANAEMIA [None]
